FAERS Safety Report 22135006 (Version 1)
Quarter: 2023Q1

REPORT INFORMATION
  Report Type: Spontaneous
  Country: IT (occurrence: IT)
  Receive Date: 20230324
  Receipt Date: 20230324
  Transmission Date: 20230418
  Serious: Yes (Other)
  Sender: FDA-Public Use
  Company Number: IT-DSJP-DSJ-2023-109125AA

PATIENT
  Age: 12 Year
  Weight: 83 kg

DRUGS (3)
  1. PRAVASTATIN [Suspect]
     Active Substance: PRAVASTATIN
     Indication: Type IIa hyperlipidaemia
     Dosage: UNK
     Route: 065
  2. PRAVASTATIN [Suspect]
     Active Substance: PRAVASTATIN
     Indication: Metabolic syndrome
  3. PRAVASTATIN [Suspect]
     Active Substance: PRAVASTATIN
     Indication: Hepatic steatosis

REACTIONS (1)
  - Hypertransaminasaemia [Not Recovered/Not Resolved]
